FAERS Safety Report 13437833 (Version 1)
Quarter: 2017Q2

REPORT INFORMATION
  Report Type: Spontaneous
  Country: US (occurrence: US)
  Receive Date: 20170412
  Receipt Date: 20170412
  Transmission Date: 20170830
  Serious: No
  Sender: FDA-Public Use
  Company Number: US-SA-2017SA004091

PATIENT
  Age: 79 Year
  Sex: Female

DRUGS (4)
  1. ALLEGRA [Suspect]
     Active Substance: FEXOFENADINE HYDROCHLORIDE
     Indication: HYPERSENSITIVITY
     Dosage: 1 GELCAP EVERY 24 HOURS
     Route: 048
     Dates: start: 20170106, end: 20170106
  2. ALLEGRA [Suspect]
     Active Substance: FEXOFENADINE HYDROCHLORIDE
     Indication: SNEEZING
     Dosage: 1 GELCAP EVERY 24 HOURS
     Route: 048
     Dates: start: 20170106, end: 20170106
  3. ALLEGRA [Suspect]
     Active Substance: FEXOFENADINE HYDROCHLORIDE
     Indication: RHINORRHOEA
     Dosage: 1 GELCAP EVERY 24 HOURS
     Route: 048
     Dates: start: 20170106, end: 20170106
  4. ALLEGRA [Suspect]
     Active Substance: FEXOFENADINE HYDROCHLORIDE
     Indication: EYE PRURITUS
     Dosage: 1 GELCAP EVERY 24 HOURS
     Route: 048
     Dates: start: 20170106, end: 20170106

REACTIONS (1)
  - Drug ineffective [Unknown]
